FAERS Safety Report 15587162 (Version 1)
Quarter: 2018Q4

REPORT INFORMATION
  Report Type: Spontaneous
  Country: BR (occurrence: BR)
  Receive Date: 20181105
  Receipt Date: 20181105
  Transmission Date: 20190205
  Serious: Yes (Hospitalization)
  Sender: FDA-Public Use
  Company Number: BR-PFIZER INC-2018248791

PATIENT
  Age: 40 Year
  Sex: Male

DRUGS (1)
  1. SUTENT [Suspect]
     Active Substance: SUNITINIB MALATE
     Dosage: CYCLIC (4X2)
     Dates: start: 20180411

REACTIONS (8)
  - Wound [Unknown]
  - Gastrointestinal disorder [Not Recovered/Not Resolved]
  - Decreased immune responsiveness [Unknown]
  - Abdominal discomfort [Unknown]
  - Vomiting [Unknown]
  - Eating disorder [Unknown]
  - Abdominal pain [Unknown]
  - Pain in extremity [Unknown]

NARRATIVE: CASE EVENT DATE: 2018
